FAERS Safety Report 8011704-6 (Version None)
Quarter: 2011Q4

REPORT INFORMATION
  Report Type: 
  Country: None (occurrence: None)
  Receive Date: 20111228
  Receipt Date: 20111222
  Transmission Date: 20120403
  Serious: Yes (Death, Other)
  Sender: FDA-Public Use
  Company Number: PHHY2011DE112084

PATIENT
  Age: 54 Year

DRUGS (2)
  1. CYCLOSPORINE [Suspect]
     Indication: PROPHYLAXIS AGAINST GRAFT VERSUS HOST DISEASE
     Dosage: 3 MG/KG/DAY
  2. METHOTREXATE [Concomitant]
     Indication: PROPHYLAXIS AGAINST GRAFT VERSUS HOST DISEASE
     Dosage: UNK UKN, UNK

REACTIONS (10)
  - PANCYTOPENIA [None]
  - MULTI-ORGAN FAILURE [None]
  - HISTIOCYTOSIS HAEMATOPHAGIC [None]
  - BONE MARROW FAILURE [None]
  - DISORIENTATION [None]
  - NEPHROPATHY TOXIC [None]
  - EPSTEIN-BARR VIRUS INFECTION [None]
  - ALTERED STATE OF CONSCIOUSNESS [None]
  - INTERLEUKIN-2 RECEPTOR INCREASED [None]
  - CEREBELLAR SYNDROME [None]
